FAERS Safety Report 20034067 (Version 1)
Quarter: 2021Q4

REPORT INFORMATION
  Report Type: Spontaneous
  Country: US (occurrence: US)
  Receive Date: 20211104
  Receipt Date: 20211104
  Transmission Date: 20220303
  Serious: No
  Sender: FDA-Public Use
  Company Number: US-PERRIGO-21US003414

PATIENT

DRUGS (2)
  1. DOXYLAMINE SUCCINATE [Suspect]
     Active Substance: DOXYLAMINE SUCCINATE
     Indication: Insomnia
     Dosage: 3/4 TABLET, UNKNOWN
     Route: 048
     Dates: end: 2021
  2. DOXYLAMINE SUCCINATE [Suspect]
     Active Substance: DOXYLAMINE SUCCINATE
     Dosage: 3/4 TABLET OR 25 MG, UNKNOWN
     Route: 048
     Dates: start: 2021, end: 202103

REACTIONS (4)
  - Fatigue [Unknown]
  - Therapeutic product effect decreased [Unknown]
  - Underdose [Unknown]
  - Wrong technique in product usage process [Unknown]

NARRATIVE: CASE EVENT DATE: 20210101
